FAERS Safety Report 8616381-9 (Version None)
Quarter: 2012Q3

REPORT INFORMATION
  Report Type: 
  Country: None (occurrence: None)
  Receive Date: 20120815
  Receipt Date: 20120815
  Transmission Date: 20120928
  Serious: No
  Sender: FDA-Public Use
  Company Number: None

PATIENT
  Sex: Female

DRUGS (1)
  1. VIMPAT [Suspect]
     Indication: MIGRAINE PROPHYLAXIS
     Dosage: 50MG BID PO
     Route: 048
     Dates: start: 20120731, end: 20120804

REACTIONS (3)
  - IRRITABILITY [None]
  - CRYING [None]
  - TREMOR [None]
